FAERS Safety Report 4847092-3 (Version None)
Quarter: 2005Q4

REPORT INFORMATION
  Report Type: 
  Country: None (occurrence: None)
  Receive Date: 20051206
  Receipt Date: 20051206
  Transmission Date: 20060501
  Serious: Yes (Death, Hospitalization)
  Sender: FDA-Public Use
  Company Number: None

PATIENT
  Sex: Female
  Weight: 11.8 kg

DRUGS (4)
  1. VINCRISTINE [Suspect]
     Indication: NEUROBLASTOMA
     Dosage: SEE IMAGE
     Route: 042
     Dates: start: 20051124, end: 20051126
  2. CYCLOPHOSPHAMIDE [Suspect]
     Dosage: SEE IMAGE
     Route: 042
     Dates: start: 20051124, end: 20051125
  3. DOXORUBICIN [Suspect]
     Dosage: SEE IMAGE
     Route: 042
     Dates: start: 20051124, end: 20051126
  4. MESNA [Suspect]
     Dosage: SEE IMAGE
     Route: 042
     Dates: start: 20051124, end: 20051126

REACTIONS (4)
  - DISSEMINATED INTRAVASCULAR COAGULATION [None]
  - HYPOXIA [None]
  - RESPIRATORY FAILURE [None]
  - TUMOUR HAEMORRHAGE [None]
